FAERS Safety Report 4390952-0 (Version None)
Quarter: 2004Q3

REPORT INFORMATION
  Report Type: 
  Country: None (occurrence: None)
  Receive Date: 20040701
  Receipt Date: 20040701
  Transmission Date: 20050211
  Serious: Yes (Hospitalization)
  Sender: FDA-Public Use
  Company Number: None

PATIENT
  Age: 53 Year
  Sex: Female
  Weight: 71 kg

DRUGS (11)
  1. LOTREL [Suspect]
     Indication: HYPERTENSION
     Dosage: 10/20 ORAL DAILY
     Route: 048
  2. LOTREL [Suspect]
     Indication: RENAL FAILURE
     Dosage: 10/20 ORAL DAILY
     Route: 048
  3. TOPROL-XL [Concomitant]
  4. AVAPRO [Concomitant]
  5. EPOGEN [Concomitant]
  6. BICITRA [Concomitant]
  7. RENAGEL [Concomitant]
  8. PHOSLO [Concomitant]
  9. NEPHROVITE [Concomitant]
  10. MAG OXIDE [Concomitant]
  11. AMBIEN [Concomitant]

REACTIONS (3)
  - CHOKING [None]
  - DYSPHAGIA [None]
  - FEELING ABNORMAL [None]
